FAERS Safety Report 20958255 (Version 1)
Quarter: 2022Q2

REPORT INFORMATION
  Report Type: Spontaneous
  Country: US (occurrence: US)
  Receive Date: 20220614
  Receipt Date: 20220614
  Transmission Date: 20220720
  Serious: No
  Sender: FDA-Public Use
  Company Number: US-PFM-2021-06409

PATIENT
  Sex: Female
  Weight: 7.202 kg

DRUGS (1)
  1. HEMANGEOL [Suspect]
     Active Substance: PROPRANOLOL HYDROCHLORIDE
     Indication: Haemangioma of skin
     Dosage: 2.8 ML, BID (2/DAY)
     Route: 048
     Dates: start: 20210120

REACTIONS (1)
  - Restlessness [Not Recovered/Not Resolved]
